FAERS Safety Report 19832296 (Version 1)
Quarter: 2021Q3

REPORT INFORMATION
  Report Type: Report from Study
  Country: ZA (occurrence: ZA)
  Receive Date: 20210915
  Receipt Date: 20210915
  Transmission Date: 20211014
  Serious: Yes (Hospitalization, Other)
  Sender: FDA-Public Use
  Company Number: NVSC2021ZA201910

PATIENT
  Sex: Male

DRUGS (2)
  1. VSIQQ [Suspect]
     Active Substance: BROLUCIZUMAB
     Indication: NEOVASCULAR AGE-RELATED MACULAR DEGENERATION
     Dosage: 27.6 MG, QMO, (27.6MG IN 0.23ML)
     Route: 047
     Dates: start: 20210617
  2. VSIQQ [Suspect]
     Active Substance: BROLUCIZUMAB
     Dosage: 27.6 MG, QMO, (27.6MG IN 0.23ML)
     Route: 047
     Dates: start: 20210824

REACTIONS (1)
  - Myocardial infarction [Unknown]
